FAERS Safety Report 11042484 (Version 2)
Quarter: 2015Q2

REPORT INFORMATION
  Report Type: Spontaneous
  Country: US (occurrence: US)
  Receive Date: 20150416
  Receipt Date: 20150525
  Transmission Date: 20150821
  Serious: No
  Sender: FDA-Public Use
  Company Number: US-JNJFOC-20141113295

PATIENT
  Age: 78 Year
  Sex: Female
  Weight: 56.7 kg

DRUGS (5)
  1. LEVOTHYROXINE [Concomitant]
     Active Substance: LEVOTHYROXINE
     Indication: THYROID DISORDER
     Route: 048
  2. ALPRAZOLAM. [Concomitant]
     Active Substance: ALPRAZOLAM
     Indication: RHINORRHOEA
     Dosage: 1/2 TO ONE TABLET UP TO FOUR TIMES A DAY.
     Route: 048
     Dates: start: 2014
  3. BUPROPION SR [Concomitant]
     Active Substance: BUPROPION
     Indication: THYROID DISORDER
     Dosage: IN THE AM (MORNING)
     Route: 048
  4. XARELTO [Suspect]
     Active Substance: RIVAROXABAN
     Indication: MITRAL VALVE PROLAPSE
     Dosage: AT DINNER
     Route: 048
     Dates: start: 20141114
  5. IRBESARTAN. [Concomitant]
     Active Substance: IRBESARTAN
     Indication: BLOOD PRESSURE ABNORMAL
     Route: 048

REACTIONS (3)
  - Epistaxis [Unknown]
  - Product use issue [Not Recovered/Not Resolved]
  - Eye movement disorder [Not Recovered/Not Resolved]

NARRATIVE: CASE EVENT DATE: 20141114
